FAERS Safety Report 8028876-X (Version None)
Quarter: 2012Q1

REPORT INFORMATION
  Report Type: 
  Country: None (occurrence: None)
  Receive Date: 20120106
  Receipt Date: 20120103
  Transmission Date: 20120608
  Serious: Yes (Other)
  Sender: FDA-Public Use
  Company Number: US-VIIV HEALTHCARE LIMITED-A0959820A

PATIENT
  Age: 50 Year
  Sex: Male

DRUGS (10)
  1. DAPSONE [Concomitant]
  2. SELZENTRY [Suspect]
     Indication: HIV INFECTION
     Dosage: 150U TWICE PER DAY
     Route: 048
     Dates: start: 20111212, end: 20111228
  3. ACIDOPHILUS [Concomitant]
  4. ALPRAZOLAM [Concomitant]
  5. PROSCAR [Concomitant]
  6. FLOMAX [Concomitant]
  7. MULTI-VITAMIN [Concomitant]
  8. LEXIVA [Concomitant]
  9. CYMBALTA [Concomitant]
  10. TRUVADA [Concomitant]

REACTIONS (4)
  - AGITATION [None]
  - ATRIAL FIBRILLATION [None]
  - FEELING HOT [None]
  - FLUSHING [None]
